FAERS Safety Report 6693449-8 (Version None)
Quarter: 2010Q2

REPORT INFORMATION
  Report Type: 
  Country: None (occurrence: None)
  Receive Date: 20100423
  Receipt Date: 20100415
  Transmission Date: 20101027
  Serious: Yes (Death, Hospitalization)
  Sender: FDA-Public Use
  Company Number: US-BIOGENIDEC-2008BI011274

PATIENT
  Sex: Female

DRUGS (4)
  1. AVONEX [Suspect]
     Indication: MULTIPLE SCLEROSIS
     Route: 030
     Dates: start: 20030901, end: 20100221
  2. AVONEX [Suspect]
     Route: 030
     Dates: start: 20030901, end: 20100221
  3. AVONEX [Suspect]
     Route: 030
     Dates: start: 20030901, end: 20100221
  4. AVONEX [Suspect]
     Route: 030
     Dates: start: 20000801, end: 20030801

REACTIONS (21)
  - ANAEMIA [None]
  - ASTHENIA [None]
  - BLOOD ALBUMIN DECREASED [None]
  - BLOOD ALKALINE PHOSPHATASE INCREASED [None]
  - COLON CANCER [None]
  - COLON CANCER METASTATIC [None]
  - DEPRESSION [None]
  - DIABETES MELLITUS [None]
  - HEADACHE [None]
  - HEMIPARESIS [None]
  - HYPONATRAEMIA [None]
  - LEUKOCYTOSIS [None]
  - MULTIPLE SCLEROSIS RELAPSE [None]
  - PANCREATIC CARCINOMA METASTATIC [None]
  - PLEURAL EFFUSION [None]
  - PNEUMONIA [None]
  - RESPIRATORY ALKALOSIS [None]
  - SKIN INFECTION [None]
  - TACHYCARDIA [None]
  - THYROID DISORDER [None]
  - URINARY TRACT INFECTION [None]
